FAERS Safety Report 6521530-2 (Version None)
Quarter: 2009Q4

REPORT INFORMATION
  Report Type: 
  Country: None (occurrence: None)
  Receive Date: 20091230
  Receipt Date: 20091221
  Transmission Date: 20100525
  Serious: Yes (Death)
  Sender: FDA-Public Use
  Company Number: IT-BRISTOL-MYERS SQUIBB COMPANY-14893168

PATIENT
  Age: 73 Year
  Sex: Male

DRUGS (4)
  1. SPRYCEL [Suspect]
     Indication: CHRONIC MYELOID LEUKAEMIA
     Dates: start: 20090801, end: 20091130
  2. ASPIRIN [Concomitant]
  3. INSULINE [Concomitant]
  4. NITRATE [Concomitant]

REACTIONS (3)
  - ANAEMIA [None]
  - CARDIOGENIC SHOCK [None]
  - RESPIRATORY ARREST [None]
